FAERS Safety Report 17740428 (Version 1)
Quarter: 2020Q2

REPORT INFORMATION
  Report Type: Spontaneous
  Country: US (occurrence: US)
  Receive Date: 20200501
  Receipt Date: 20200501
  Transmission Date: 20200714
  Serious: Yes (Other)
  Sender: FDA-Public Use
  Company Number: None

PATIENT
  Age: 50 Year
  Sex: Male

DRUGS (1)
  1. PENICILLIN (PENICILLIN V K 500MG TAB) [Suspect]
     Active Substance: PENICILLIN V POTASSIUM

REACTIONS (4)
  - Rash [None]
  - Urticaria [None]
  - Erythema multiforme [None]
  - Dyspnoea [None]

NARRATIVE: CASE EVENT DATE: 20200206
